FAERS Safety Report 11810876 (Version 1)
Quarter: 2015Q4

REPORT INFORMATION
  Report Type: Spontaneous
  Country: US (occurrence: US)
  Receive Date: 20151208
  Receipt Date: 20151208
  Transmission Date: 20160305
  Serious: Yes (Hospitalization, Congenital Anomaly, Other)
  Sender: FDA-Public Use
  Company Number: US-APOTEX-2015AP014927

PATIENT
  Age: 0 Day
  Sex: Female

DRUGS (4)
  1. PAROXETINE HYDROCHLORIDE. [Suspect]
     Active Substance: PAROXETINE HYDROCHLORIDE
     Indication: DEPRESSION
     Route: 064
  2. MACROBID [Concomitant]
     Active Substance: NITROFURANTOIN\NITROFURANTOIN MONOHYDRATE
     Indication: PRODUCT USED FOR UNKNOWN INDICATION
     Route: 065
  3. PAXIL [Suspect]
     Active Substance: PAROXETINE HYDROCHLORIDE
     Indication: DEPRESSION
     Dosage: 20 MG, UNK
     Route: 064
  4. PAXIL [Suspect]
     Active Substance: PAROXETINE HYDROCHLORIDE
     Dosage: 40 MG DAILY
     Route: 064
     Dates: start: 20040119

REACTIONS (18)
  - Neurogenic bladder [Recovering/Resolving]
  - Neurogenic bowel [Not Recovered/Not Resolved]
  - Cerebral ventricle dilatation [Unknown]
  - Foot deformity [Unknown]
  - Bladder hypertrophy [Recovering/Resolving]
  - Developmental delay [Unknown]
  - Developmental hip dysplasia [Unknown]
  - Skin irritation [Unknown]
  - Bladder mass [Recovering/Resolving]
  - Gait disturbance [Recovering/Resolving]
  - Arnold-Chiari malformation [Unknown]
  - Cardiac murmur [Unknown]
  - Foetal exposure during pregnancy [Unknown]
  - Spina bifida [Unknown]
  - Meningomyelocele [Unknown]
  - Joint dislocation [Unknown]
  - Bladder disorder [Recovering/Resolving]
  - Ureteric dilatation [Recovering/Resolving]

NARRATIVE: CASE EVENT DATE: 20040525
